FAERS Safety Report 23522961 (Version 1)
Quarter: 2024Q1

REPORT INFORMATION
  Report Type: Spontaneous
  Country: US (occurrence: None)
  Receive Date: 20240214
  Receipt Date: 20240214
  Transmission Date: 20240410
  Serious: Yes (Death)
  Sender: FDA-Public Use
  Company Number: None

PATIENT
  Age: 66 Year
  Sex: Male

DRUGS (1)
  1. REPATHA [Suspect]
     Active Substance: EVOLOCUMAB
     Indication: Type V hyperlipidaemia
     Dosage: OTHER QUANTITY : 1 PEN;?OTHER FREQUENCY : EVERY 14 DAYS;?
     Route: 058
     Dates: start: 20190201, end: 202402

REACTIONS (1)
  - Death [None]

NARRATIVE: CASE EVENT DATE: 20240212
